FAERS Safety Report 14299004 (Version 1)
Quarter: 2017Q4

REPORT INFORMATION
  Report Type: Spontaneous
  Country: US (occurrence: US)
  Receive Date: 20171217
  Receipt Date: 20171217
  Transmission Date: 20180321
  Serious: Yes (Life-Threatening, Hospitalization, Disabling, Other)
  Sender: FDA-Public Use
  Company Number: None

PATIENT
  Age: 58 Year
  Sex: Female
  Weight: 69.75 kg

DRUGS (11)
  1. NATURES BOUNTY HAIR SKIN NAILS. [Concomitant]
  2. CALCIUM [Concomitant]
     Active Substance: CALCIUM
  3. ACIA [Concomitant]
  4. MULTIVITAMIN [Concomitant]
     Active Substance: VITAMINS
  5. PROBIOTIC [Concomitant]
     Active Substance: PROBIOTICS NOS
  6. OPC-3 [Concomitant]
  7. ALOE JUICE [Concomitant]
  8. HAIR SKIN NAILS [Concomitant]
  9. TLS ACTS [Concomitant]
  10. MIRALAX [Suspect]
     Active Substance: POLYETHYLENE GLYCOL 3350
     Indication: COLONOSCOPY
     Dosage: 255 ONCE (S)?1/2 EVENING 1/2 MO ORAL?
     Route: 048
     Dates: start: 20171012, end: 20171013
  11. FISH OIL [Concomitant]
     Active Substance: FISH OIL

REACTIONS (3)
  - Dizziness [None]
  - Transient ischaemic attack [None]
  - Hypersensitivity [None]

NARRATIVE: CASE EVENT DATE: 20171013
